FAERS Safety Report 4934113-2 (Version None)
Quarter: 2006Q1

REPORT INFORMATION
  Report Type: 
  Country: None (occurrence: None)
  Receive Date: 20060303
  Receipt Date: 20060221
  Transmission Date: 20060701
  Serious: Yes (Other)
  Sender: FDA-Public Use
  Company Number: 2006027340

PATIENT
  Sex: Male
  Weight: 75.7507 kg

DRUGS (2)
  1. NORVASC [Suspect]
     Indication: HYPERTENSION
     Dosage: SEE IMAGE, ORAL
     Route: 048
  2. COUMADIN [Concomitant]

REACTIONS (5)
  - DIZZINESS [None]
  - HERPES ZOSTER [None]
  - POST HERPETIC NEURALGIA [None]
  - RENAL IMPAIRMENT [None]
  - SICK SINUS SYNDROME [None]
